FAERS Safety Report 4709805-0 (Version None)
Quarter: 2005Q3

REPORT INFORMATION
  Report Type: 
  Country: None (occurrence: None)
  Receive Date: 20050708
  Receipt Date: 20050622
  Transmission Date: 20060218
  Serious: No
  Sender: FDA-Public Use
  Company Number: JP-MERCK-0506USA03412

PATIENT
  Age: 94 Year
  Sex: Female

DRUGS (9)
  1. FOSAMAX [Suspect]
     Indication: OSTEOPOROSIS
     Route: 048
     Dates: start: 20050408, end: 20050411
  2. NORVASC [Suspect]
     Indication: HYPERTENSION
     Route: 048
  3. MEVALOTIN [Concomitant]
     Indication: HYPERLIPIDAEMIA
     Route: 048
  4. ETIZOLAM [Suspect]
     Indication: OSTEOPOROSIS
     Route: 048
  5. ETIZOLAM [Suspect]
     Indication: PAIN
     Route: 048
  6. FLUVOXAMINE MALEATE [Concomitant]
     Indication: OSTEOPOROSIS
     Route: 048
  7. FLUVOXAMINE MALEATE [Concomitant]
     Indication: PAIN
     Route: 048
  8. D-ALPHA [Concomitant]
     Indication: OSTEOPOROSIS
     Route: 048
  9. [THERAPY UNSPECIFIED] [Concomitant]
     Indication: HYPERTENSION
     Route: 065

REACTIONS (1)
  - COUGH [None]
